FAERS Safety Report 7720865-5 (Version None)
Quarter: 2011Q3

REPORT INFORMATION
  Report Type: 
  Country: None (occurrence: None)
  Receive Date: 20110831
  Receipt Date: 20110819
  Transmission Date: 20111222
  Serious: Yes (Other)
  Sender: FDA-Public Use
  Company Number: JP-JNJFOC-20081202933

PATIENT
  Age: 14 Year
  Sex: Female
  Weight: 34 kg

DRUGS (12)
  1. REMICADE [Suspect]
     Route: 042
     Dates: start: 20080404
  2. REMICADE [Suspect]
     Route: 042
     Dates: start: 20080528
  3. REMICADE [Suspect]
     Route: 042
     Dates: start: 20080703
  4. REMICADE [Suspect]
     Route: 042
     Dates: start: 20071026
  5. REMICADE [Suspect]
     Route: 042
     Dates: start: 20080916
  6. REMICADE [Suspect]
     Route: 042
     Dates: start: 20071207
  7. IMURAN [Suspect]
     Indication: CROHN'S DISEASE
     Route: 048
     Dates: start: 20061101
  8. REMICADE [Suspect]
     Route: 042
     Dates: start: 20071109
  9. REMICADE [Suspect]
     Indication: CROHN'S DISEASE
     Route: 042
     Dates: start: 20080208
  10. REMICADE [Suspect]
     Dosage: 9 INFUSIONS THEN TEMP D/C, RESUMED 3 WKS AFTER SKIN BX FOR A TOTAL OF 15 SUBSEQUENT DOSES
     Route: 042
     Dates: start: 20081203
  11. PENTASA [Concomitant]
     Indication: CROHN'S DISEASE
     Route: 048
     Dates: start: 20060801
  12. PREDNISOLONE [Concomitant]
     Indication: CROHN'S DISEASE
     Route: 048
     Dates: start: 20061001, end: 20071101

REACTIONS (2)
  - DECREASED APPETITE [None]
  - PUSTULAR PSORIASIS [None]
